FAERS Safety Report 4955737-2 (Version None)
Quarter: 2006Q1

REPORT INFORMATION
  Report Type: 
  Country: None (occurrence: None)
  Receive Date: 20060328
  Receipt Date: 20060316
  Transmission Date: 20060701
  Serious: Yes (Hospitalization)
  Sender: FDA-Public Use
  Company Number: BA-ROCHE-440640

PATIENT
  Age: 51 Year
  Sex: Female

DRUGS (5)
  1. BONIVA [Suspect]
     Dosage: LOADING DOSE.
     Route: 042
     Dates: start: 20060313, end: 20060314
  2. CALCIMED D3 [Concomitant]
     Dates: start: 20060313, end: 20060315
  3. ANALGIN [Concomitant]
     Dates: start: 20050527
  4. APAURIN [Concomitant]
     Dates: start: 20050527
  5. VOLTAREN [Concomitant]
     Dates: start: 20050527

REACTIONS (3)
  - BLOOD PRESSURE INCREASED [None]
  - HYPERSENSITIVITY [None]
  - URTICARIA [None]
